FAERS Safety Report 8443918-5 (Version None)
Quarter: 2012Q2

REPORT INFORMATION
  Report Type: 
  Country: None (occurrence: None)
  Receive Date: 20120618
  Receipt Date: 20120607
  Transmission Date: 20120825
  Serious: Yes (Hospitalization, Other)
  Sender: FDA-Public Use
  Company Number: US-BAYER-2011-112041

PATIENT
  Age: 25 Year
  Sex: Female
  Weight: 70.295 kg

DRUGS (10)
  1. YASMIN [Suspect]
     Indication: MENSTRUATION IRREGULAR
     Dosage: UNK
     Dates: start: 20060101
  2. YASMIN [Suspect]
     Indication: OVARIAN CYST
     Dosage: UNK
     Dates: start: 20090801
  3. FOLIC ACID [Concomitant]
  4. YASMIN [Suspect]
     Dosage: UNK
     Dates: start: 20090901, end: 20091001
  5. YAZ [Suspect]
     Indication: OVARIAN CYST
     Dosage: UNK
     Dates: start: 20090901, end: 20091001
  6. CIPROFLOXACIN HCL [Concomitant]
  7. ZOFRAN [Concomitant]
  8. AVANDIA [Concomitant]
  9. YAZ [Suspect]
     Indication: MENSTRUATION IRREGULAR
     Dosage: UNK
     Dates: start: 20060801
  10. BACTRIM DS [Concomitant]

REACTIONS (13)
  - ANXIETY [None]
  - INJURY [None]
  - DEPRESSION [None]
  - STRESS [None]
  - PULMONARY INFARCTION [None]
  - VAGINAL HAEMORRHAGE [None]
  - EMOTIONAL DISTRESS [None]
  - PLEURISY [None]
  - CHEST PAIN [None]
  - INSOMNIA [None]
  - IMPAIRED WORK ABILITY [None]
  - PULMONARY EMBOLISM [None]
  - WEIGHT INCREASED [None]
